FAERS Safety Report 14028366 (Version 1)
Quarter: 2017Q3

REPORT INFORMATION
  Report Type: Report from Study
  Country: NL (occurrence: NL)
  Receive Date: 20170930
  Receipt Date: 20170930
  Transmission Date: 20171128
  Serious: Yes (Hospitalization, Other)
  Sender: FDA-Public Use
  Company Number: NL-AMGEN-NLDSL2017145638

PATIENT
  Age: 89 Year
  Sex: Female

DRUGS (2)
  1. ARANESP [Suspect]
     Active Substance: DARBEPOETIN ALFA
     Indication: ECZEMA
  2. ARANESP [Suspect]
     Active Substance: DARBEPOETIN ALFA
     Indication: CARDIAC VALVE DISEASE
     Dosage: 60 MUG (IN 0.3ML, AS 200MCG/ML), Q4WK
     Route: 058

REACTIONS (2)
  - Hospitalisation [Unknown]
  - Off label use [Unknown]

NARRATIVE: CASE EVENT DATE: 20170923
